FAERS Safety Report 9537641 (Version 2)
Quarter: 2013Q3

REPORT INFORMATION
  Report Type: Report from Study
  Country: JP (occurrence: JP)
  Receive Date: 20130919
  Receipt Date: 20130919
  Transmission Date: 20140515
  Serious: Yes (Other)
  Sender: FDA-Public Use
  Company Number: JP-ASTRAZENECA-2013SE53918

PATIENT
  Age: 82 Year
  Sex: Female
  Weight: 52 kg

DRUGS (3)
  1. NEXIUM [Suspect]
     Indication: GASTROOESOPHAGEAL REFLUX DISEASE
     Route: 048
     Dates: start: 20121031, end: 20130507
  2. BAYASPIRIN [Suspect]
     Indication: TRANSIENT ISCHAEMIC ATTACK
     Route: 048
     Dates: end: 20130508
  3. DIOVAN [Suspect]
     Indication: HYPERTENSION
     Route: 048
     Dates: end: 20130507

REACTIONS (1)
  - Cerebral infarction [Recovered/Resolved]
